FAERS Safety Report 7268613-X (Version None)
Quarter: 2010Q4

REPORT INFORMATION
  Report Type: 
  Country: None (occurrence: None)
  Receive Date: 20101206
  Receipt Date: 20100917
  Transmission Date: 20110411
  Serious: No
  Sender: FDA-Public Use
  Company Number: 2010SP050144

PATIENT
  Age: 30 Year
  Sex: Female

DRUGS (2)
  1. SAPHRIS [Suspect]
     Indication: PRODUCT USED FOR UNKNOWN INDICATION
  2. DEPAKOTE [Concomitant]

REACTIONS (1)
  - DYSPHAGIA [None]
